FAERS Safety Report 7487638-2 (Version None)
Quarter: 2011Q2

REPORT INFORMATION
  Report Type: 
  Country: None (occurrence: None)
  Receive Date: 20110518
  Receipt Date: 20091204
  Transmission Date: 20111010
  Serious: Yes (Death, Other)
  Sender: FDA-Public Use
  Company Number: US-BAYER-201038646NA

PATIENT
  Age: 69 Year
  Sex: Female
  Weight: 88 kg

DRUGS (19)
  1. RED BLOOD CELLS [Concomitant]
     Dosage: 2 U, UNK
  2. CARDIOPLEGIA [Concomitant]
     Dosage: 4300 ML, CPB
     Dates: start: 20040330, end: 20040330
  3. PLASMA [Concomitant]
     Dosage: 400 ML, UNK
  4. PROTAMINE SULFATE [Concomitant]
     Dosage: 50MG X1
     Route: 042
     Dates: start: 20040330, end: 20040330
  5. TRASYLOL [Suspect]
     Indication: CORONARY ARTERY BYPASS
     Dosage: LOADING DOSE OF  200ML, FOLLOWED BY CONTINUOUS INFUSION OF 50ML/HR
     Route: 042
     Dates: start: 20040330, end: 20040330
  6. PLATELETS [Concomitant]
     Dosage: 2 U, UNK
  7. HEPARIN [Concomitant]
     Dosage: 45000 U, UNK
     Route: 042
     Dates: start: 20040330, end: 20040330
  8. BENICAR [Concomitant]
     Dosage: 40/12.5MG QD
     Route: 048
     Dates: start: 19840101, end: 20040326
  9. PREDNISONE [Concomitant]
     Dosage: UNK
     Route: 048
     Dates: start: 19960101, end: 20040330
  10. NITROGLYCERIN [Concomitant]
     Dosage: IV GTT
     Dates: start: 20040330, end: 20040331
  11. METOPROLOL SUCCINATE [Concomitant]
     Dosage: 25MG
     Route: 048
     Dates: start: 19840101, end: 20040326
  12. NITROGLYCERIN [Concomitant]
     Dosage: SL THEN IV GTT
     Dates: start: 20040325, end: 20040330
  13. LASIX [Concomitant]
     Dosage: 120MG X1,200MG X1
     Route: 042
     Dates: start: 20040331, end: 20040331
  14. CLONIDINE [Concomitant]
     Dosage: UNK
     Dates: start: 19840101, end: 20040330
  15. ACETYLSALICYLIC ACID SRT [Concomitant]
     Dosage: 325 MG QD
     Route: 048
     Dates: start: 20040325, end: 20040325
  16. LISINOPRIL [Concomitant]
     Dosage: 5MG QD
     Route: 048
     Dates: start: 20040325, end: 20040325
  17. HEPARIN [Concomitant]
     Dosage: IV GTT
     Dates: start: 20040326, end: 20040329
  18. LASIX [Concomitant]
     Dosage: 80 MG, UNK
     Route: 042
     Dates: start: 20040330, end: 20040330
  19. INSULIN [Concomitant]
     Dosage: IV GTT
     Dates: start: 20040330, end: 20040331

REACTIONS (8)
  - INJURY [None]
  - FEAR [None]
  - ANXIETY [None]
  - DEPRESSION [None]
  - RENAL FAILURE [None]
  - DEATH [None]
  - CARDIOGENIC SHOCK [None]
  - PAIN [None]
